FAERS Safety Report 21198423 (Version 2)
Quarter: 2022Q3

REPORT INFORMATION
  Report Type: Spontaneous
  Country: US (occurrence: US)
  Receive Date: 20220811
  Receipt Date: 20220829
  Transmission Date: 20221027
  Serious: Yes (Death, Life-Threatening)
  Sender: FDA-Public Use
  Company Number: US-TEVA-2022-US-2062852

PATIENT
  Age: 30 Year
  Sex: Male

DRUGS (4)
  1. PREDNISONE [Suspect]
     Active Substance: PREDNISONE
     Indication: Evans syndrome
     Route: 048
  2. IMMUNE GLOBULIN NOS [Suspect]
     Active Substance: IMMUNE GLOBULIN NOS
     Indication: Evans syndrome
     Route: 042
  3. RITUXIMAB [Suspect]
     Active Substance: RITUXIMAB
     Indication: Evans syndrome
     Route: 065
  4. CYCLOPHOSPHAMIDE [Suspect]
     Active Substance: CYCLOPHOSPHAMIDE
     Indication: Evans syndrome
     Route: 065

REACTIONS (1)
  - Drug ineffective [Fatal]
